FAERS Safety Report 7332880-4 (Version None)
Quarter: 2011Q1

REPORT INFORMATION
  Report Type: 
  Country: None (occurrence: None)
  Receive Date: 20110304
  Receipt Date: 20110223
  Transmission Date: 20110831
  Serious: Yes (Hospitalization, Other)
  Sender: FDA-Public Use
  Company Number: PHHO2010US13535

PATIENT
  Sex: Male
  Weight: 102 kg

DRUGS (13)
  1. BLINDED NO TREATMENT RECEIVED [Suspect]
     Indication: CORONARY ARTERY DISEASE
     Dosage: CODE NOT BROKEN
     Dates: start: 20100709, end: 20100827
  2. CILOSTAZOL [Concomitant]
  3. ISOSORBIDE MONONITRATE [Concomitant]
  4. METOPROLOL [Concomitant]
  5. HYDROCHLOROTHIAZIDE [Concomitant]
  6. SIMVASTATIN [Concomitant]
  7. VENLAFAXINE [Concomitant]
  8. BLINDED ALISKIREN [Suspect]
     Indication: CORONARY ARTERY DISEASE
     Dosage: CODE NOT BROKEN
     Dates: start: 20100709, end: 20100827
  9. BLINDED PLACEBO [Suspect]
     Indication: CORONARY ARTERY DISEASE
     Dosage: CODE NOT BROKEN
     Dates: start: 20100709, end: 20100827
  10. ALISKIREN [Suspect]
     Indication: CORONARY ARTERY DISEASE
     Dosage: NO TREATMENT
  11. TERAZOSIN [Concomitant]
  12. BUPROPION [Concomitant]
  13. ASPIRIN [Concomitant]

REACTIONS (2)
  - NON-CARDIAC CHEST PAIN [None]
  - PRURITUS [None]
